FAERS Safety Report 4819538-8 (Version None)
Quarter: 2005Q4

REPORT INFORMATION
  Report Type: 
  Country: None (occurrence: None)
  Receive Date: 20051102
  Receipt Date: 20051021
  Transmission Date: 20060501
  Serious: Yes (Hospitalization)
  Sender: FDA-Public Use
  Company Number: US-2005-019968

PATIENT
  Age: 32 Year
  Sex: Female
  Weight: 113.4 kg

DRUGS (5)
  1. BETASERON [Suspect]
     Indication: MULTIPLE SCLEROSIS
     Dosage: 8 MIU, EVERY 2D, SUBCUTANEOUS
     Route: 058
     Dates: start: 20040315
  2. MYSOLINE ^ASTRA^ (PRIMIDONE) [Concomitant]
  3. BACLOFEN [Concomitant]
  4. CELEXA [Concomitant]
  5. PROTONIX [Concomitant]

REACTIONS (1)
  - PARALYSIS [None]
